FAERS Safety Report 5341601-6 (Version None)
Quarter: 2007Q2

REPORT INFORMATION
  Report Type: 
  Country: None (occurrence: None)
  Receive Date: 20070529
  Receipt Date: 20070529
  Transmission Date: 20071010
  Serious: Yes (Other)
  Sender: FDA-Public Use
  Company Number: None

PATIENT
  Sex: Female

DRUGS (1)
  1. ZETIA [Suspect]
     Indication: HYPERLIPIDAEMIA
     Dosage: 10MG QD PO
     Route: 048
     Dates: start: 20070302, end: 20070503

REACTIONS (1)
  - LIVER FUNCTION TEST ABNORMAL [None]
